FAERS Safety Report 6734743-1 (Version None)
Quarter: 2010Q2

REPORT INFORMATION
  Report Type: 
  Country: None (occurrence: None)
  Receive Date: 20100519
  Receipt Date: 20100519
  Transmission Date: 20101027
  Serious: Yes (Hospitalization)
  Sender: FDA-Public Use
  Company Number: None

PATIENT
  Age: 26 Year
  Sex: Female
  Weight: 56.6996 kg

DRUGS (1)
  1. MIRENA [Suspect]
     Indication: CONTRACEPTION
     Dosage: 1 5 YEARS
     Dates: start: 20091201, end: 20100401

REACTIONS (5)
  - ABDOMINAL PAIN LOWER [None]
  - DIARRHOEA [None]
  - MALAISE [None]
  - MUSCLE SPASMS [None]
  - TENDERNESS [None]
